FAERS Safety Report 21053763 (Version 3)
Quarter: 2022Q3

REPORT INFORMATION
  Report Type: Report from Study
  Country: CA (occurrence: CA)
  Receive Date: 20220707
  Receipt Date: 20220825
  Transmission Date: 20221027
  Serious: Yes (Other)
  Sender: FDA-Public Use
  Company Number: CA-NOVARTISPH-NVSC2022CA108151

PATIENT
  Age: 75 Year
  Sex: Female

DRUGS (3)
  1. METHOTREXATE [Suspect]
     Active Substance: METHOTREXATE
     Indication: Product used for unknown indication
     Dosage: UNK
     Route: 058
  2. FOLIC ACID [Suspect]
     Active Substance: FOLIC ACID
     Indication: Product used for unknown indication
     Dosage: UNK
     Route: 048
  3. GOLD [Concomitant]
     Active Substance: GOLD
     Indication: Product used for unknown indication
     Dosage: UNK (SC)
     Route: 030

REACTIONS (16)
  - Macular hole [Unknown]
  - Osteoarthritis [Unknown]
  - Fall [Unknown]
  - Cholelithiasis [Unknown]
  - Condition aggravated [Unknown]
  - Asthenia [Unknown]
  - Joint injury [Unknown]
  - Anxiety [Unknown]
  - Sinusitis [Unknown]
  - Rhinorrhoea [Unknown]
  - Urinary tract infection [Unknown]
  - Pyrexia [Unknown]
  - Chills [Unknown]
  - Confusional state [Unknown]
  - Osteoporosis [Unknown]
  - Vomiting [Unknown]

NARRATIVE: CASE EVENT DATE: 20220627
